FAERS Safety Report 11250972 (Version 1)
Quarter: 2015Q3

REPORT INFORMATION
  Report Type: Spontaneous
  Country: US (occurrence: US)
  Receive Date: 20150708
  Receipt Date: 20150708
  Transmission Date: 20151125
  Serious: Yes (Death)
  Sender: FDA-Public Use
  Company Number: US-ELI_LILLY_AND_COMPANY-US201103003545

PATIENT
  Sex: Male
  Weight: 73.47 kg

DRUGS (5)
  1. VITAMIN B12 [Concomitant]
     Active Substance: CYANOCOBALAMIN
     Dosage: 1000 MG, UNKNOWN
     Route: 058
     Dates: start: 20101215
  2. ALIMTA [Suspect]
     Active Substance: PEMETREXED DISODIUM
     Dosage: 845.8 MG, EVERY THREE WEEKS
     Route: 042
     Dates: start: 20110223
  3. FOLIC ACID. [Concomitant]
     Active Substance: FOLIC ACID
     Dosage: 400 MG, BID
     Route: 048
     Dates: start: 20101220
  4. DECADRON [Concomitant]
     Active Substance: DEXAMETHASONE
     Dosage: 10 MG, UNKNOWN
     Route: 042
     Dates: start: 20101222
  5. ALIMTA [Suspect]
     Active Substance: PEMETREXED DISODIUM
     Dosage: 845.8 MG, EVERY THREE WEEKS
     Route: 042
     Dates: start: 20101222

REACTIONS (1)
  - Neoplasm progression [Fatal]
